FAERS Safety Report 6238721-0 (Version None)
Quarter: 2009Q2

REPORT INFORMATION
  Report Type: 
  Country: None (occurrence: None)
  Receive Date: 20090617
  Receipt Date: 20090617
  Transmission Date: 20091009
  Serious: Yes (Disabling)
  Sender: FDA-Public Use
  Company Number: None

PATIENT
  Age: 50 Year
  Sex: Female
  Weight: 79.3795 kg

DRUGS (1)
  1. MIRENA [Suspect]

REACTIONS (4)
  - CONTRAINDICATION TO MEDICAL TREATMENT [None]
  - IUD MIGRATION [None]
  - PELVIC PAIN [None]
  - PYELONEPHRITIS [None]
